FAERS Safety Report 16679352 (Version 2)
Quarter: 2019Q3

REPORT INFORMATION
  Report Type: Spontaneous
  Country: DK (occurrence: DK)
  Receive Date: 20190807
  Receipt Date: 20190815
  Transmission Date: 20191004
  Serious: Yes (Other)
  Sender: FDA-Public Use
  Company Number: DK-MYLANLABS-2019M1073248

PATIENT
  Age: 65 Year
  Sex: Female

DRUGS (3)
  1. CALCIUM +VIT D [Concomitant]
     Active Substance: CALCIUM\VITAMIN D
     Indication: OSTEOPOROSIS
     Dosage: STYRKE: UKENDT.
     Route: 065
     Dates: start: 20090626
  2. ALENDRONATE [Suspect]
     Active Substance: ALENDRONATE SODIUM
     Indication: OSTEOPOROSIS
     Dosage: 70 MILLIGRAM, QW
     Route: 048
     Dates: start: 20090626, end: 20180213
  3. VITAMIN D                          /00107901/ [Concomitant]
     Active Substance: ERGOCALCIFEROL
     Indication: OSTEOPOROSIS
     Dosage: STYRKE: UKENDT.
     Dates: start: 20090626

REACTIONS (7)
  - Impaired healing [Recovered/Resolved]
  - Osteonecrosis of jaw [Not Recovered/Not Resolved]
  - Dental paraesthesia [Recovered/Resolved]
  - Tooth loss [Recovered/Resolved with Sequelae]
  - Mastication disorder [Not Recovered/Not Resolved]
  - Gingival recession [Recovered/Resolved]
  - Oral cavity fistula [Recovered/Resolved]

NARRATIVE: CASE EVENT DATE: 2017
